FAERS Safety Report 16872216 (Version 1)
Quarter: 2019Q4

REPORT INFORMATION
  Report Type: Spontaneous
  Country: US (occurrence: US)
  Receive Date: 20191001
  Receipt Date: 20191001
  Transmission Date: 20200122
  Serious: No
  Sender: FDA-Public Use
  Company Number: None

PATIENT
  Age: 64 Year
  Sex: Female
  Weight: 113.4 kg

DRUGS (22)
  1. ASPIRIN 81MG [Concomitant]
     Active Substance: ASPIRIN
  2. GLYBURIDE. [Concomitant]
     Active Substance: GLYBURIDE
  3. FLUOXETINE HCL [Concomitant]
     Active Substance: FLUOXETINE HYDROCHLORIDE
  4. SUCRALFATE. [Concomitant]
     Active Substance: SUCRALFATE
  5. FERROUS SULFATE. [Concomitant]
     Active Substance: FERROUS SULFATE
  6. VERZENIO [Suspect]
     Active Substance: ABEMACICLIB
     Indication: BREAST CANCER FEMALE
     Route: 048
  7. METOPROLOL TARTRATE. [Concomitant]
     Active Substance: METOPROLOL TARTRATE
  8. MAGNESIUM [Concomitant]
     Active Substance: MAGNESIUM
  9. PROAIR FHA [Concomitant]
  10. OMEPRAZOLE. [Concomitant]
     Active Substance: OMEPRAZOLE
  11. METFORMIN HYDROCHLORIDE. [Concomitant]
     Active Substance: METFORMIN HYDROCHLORIDE
  12. KISQALI [Concomitant]
     Active Substance: RIBOCICLIB
  13. BRILINTA [Concomitant]
     Active Substance: TICAGRELOR
  14. ATORVASTATIN CALCIUM. [Concomitant]
     Active Substance: ATORVASTATIN CALCIUM
  15. FOLIC ACID. [Concomitant]
     Active Substance: FOLIC ACID
  16. LORTAB [Concomitant]
     Active Substance: ACETAMINOPHEN\HYDROCODONE BITARTRATE
  17. ZOLPIDEM TARTRATE. [Concomitant]
     Active Substance: ZOLPIDEM TARTRATE
  18. FUROSEMIDE. [Concomitant]
     Active Substance: FUROSEMIDE
  19. GABAPENTIN. [Concomitant]
     Active Substance: GABAPENTIN
  20. ALPRAZOLAM. [Concomitant]
     Active Substance: ALPRAZOLAM
  21. SPIRONOLACTONE. [Concomitant]
     Active Substance: SPIRONOLACTONE
  22. ONDANSETRON HCL [Concomitant]
     Active Substance: ONDANSETRON HYDROCHLORIDE

REACTIONS (1)
  - Disease progression [None]
